FAERS Safety Report 24067838 (Version 1)
Quarter: 2024Q3

REPORT INFORMATION
  Report Type: Spontaneous
  Country: US (occurrence: US)
  Receive Date: 20240710
  Receipt Date: 20240710
  Transmission Date: 20241017
  Serious: No
  Sender: ROCHE
  Company Number: US-ROCHE-10000018407

PATIENT
  Age: 55 Year
  Sex: Female

DRUGS (7)
  1. OCRELIZUMAB [Suspect]
     Active Substance: OCRELIZUMAB
     Indication: Relapsing-remitting multiple sclerosis
     Route: 050
     Dates: start: 201801, end: 202001
  2. PREDNISONE [Concomitant]
     Active Substance: PREDNISONE
     Route: 048
     Dates: start: 202009
  3. PREDNISONE [Concomitant]
     Active Substance: PREDNISONE
  4. TRIAMCINOLONE [Concomitant]
     Active Substance: TRIAMCINOLONE
     Dosage: 40-100 MG PER ADMINISTRATION
     Route: 048
     Dates: start: 202012, end: 202103
  5. METHYLPREDNISOLONE [Concomitant]
     Active Substance: METHYLPREDNISOLONE
     Dosage: 40-100 MG PER ADMINISTRATION
     Route: 042
     Dates: start: 202012, end: 202103
  6. CYCLOSPORINE [Concomitant]
     Active Substance: CYCLOSPORINE
     Dosage: 40-100 MG PER ADMINISTRATION
     Route: 048
     Dates: start: 202101, end: 202103
  7. CLOBETASOL [Concomitant]
     Active Substance: CLOBETASOL
     Dates: start: 202012, end: 202103

REACTIONS (1)
  - Pyoderma gangrenosum [Unknown]
